FAERS Safety Report 10715880 (Version 1)
Quarter: 2015Q1

REPORT INFORMATION
  Report Type: Spontaneous
  Country: US (occurrence: None)
  Receive Date: 20150109
  Receipt Date: 20150109
  Transmission Date: 20150721
  Serious: Yes (Other)
  Sender: FDA-Public Use
  Company Number: 2014PROUSA04122

PATIENT
  Age: 86 Year
  Sex: Male

DRUGS (1)
  1. PROVENGE [Suspect]
     Active Substance: SIPULEUCEL-T
     Indication: PROSTATE CANCER METASTATIC
     Route: 042
     Dates: start: 20141009, end: 20141009

REACTIONS (2)
  - Cyst [None]
  - Haemoglobin decreased [None]

NARRATIVE: CASE EVENT DATE: 2014
